FAERS Safety Report 10982046 (Version 4)
Quarter: 2015Q3

REPORT INFORMATION
  Report Type: Report from Study
  Country: NL (occurrence: NL)
  Receive Date: 20150403
  Receipt Date: 20150911
  Transmission Date: 20151125
  Serious: Yes (Hospitalization)
  Sender: FDA-Public Use
  Company Number: NL-ROCHE-1555643

PATIENT
  Age: 73 Year
  Sex: Male

DRUGS (7)
  1. LENALIDOMIDE [Suspect]
     Active Substance: LENALIDOMIDE
     Indication: CHRONIC LYMPHOCYTIC LEUKAEMIA
     Dosage: LAST DOSE PRIOR TO SAE:12/JAN/2015
     Route: 065
     Dates: start: 20150102, end: 20150112
  2. CHLORAMBUCIL [Suspect]
     Active Substance: CHLORAMBUCIL
     Indication: CHRONIC LYMPHOCYTIC LEUKAEMIA
     Dosage: ON 08/JAN/2015 AND ON 27/FEB/2015, HE RECEIVED DOSE OF RITUXIMAB. DATE OF LAST DOSE PRIOR TO SAE: 05
     Route: 048
     Dates: start: 20150102
  3. MODALIM [Concomitant]
     Active Substance: CIPROFIBRATE
  4. PREDNISOLONE. [Suspect]
     Active Substance: PREDNISOLONE
     Route: 065
  5. RITUXIMAB [Suspect]
     Active Substance: RITUXIMAB
     Indication: CHRONIC LYMPHOCYTIC LEUKAEMIA
     Dosage: DATE OF LAST DOSE PRIOR TO SAE: 27/FEB/2015, DOSE: 375 MG/M2
     Route: 042
     Dates: start: 20150102
  6. PREDNISOLONE. [Suspect]
     Active Substance: PREDNISOLONE
     Indication: PRODUCT USED FOR UNKNOWN INDICATION
     Route: 065
  7. ROSUVASTATIN [Concomitant]
     Active Substance: ROSUVASTATIN

REACTIONS (6)
  - Febrile neutropenia [Unknown]
  - Febrile neutropenia [Not Recovered/Not Resolved]
  - Synovitis [Recovered/Resolved]
  - Headache [Unknown]
  - Neck pain [Recovered/Resolved]
  - Acute coronary syndrome [Recovered/Resolved]

NARRATIVE: CASE EVENT DATE: 20150112
